FAERS Safety Report 6434408-X (Version None)
Quarter: 2009Q4

REPORT INFORMATION
  Report Type: 
  Country: None (occurrence: None)
  Receive Date: 20091110
  Receipt Date: 20090618
  Transmission Date: 20100525
  Serious: No
  Sender: FDA-Public Use
  Company Number: US-ASTRAZENECA-2009SE10018

PATIENT
  Age: 70 Year
  Sex: Female

DRUGS (3)
  1. PRILOSEC OTC [Suspect]
     Indication: GASTROOESOPHAGEAL REFLUX DISEASE
     Route: 048
     Dates: start: 20090618, end: 20090618
  2. VITAMIN B-12 [Concomitant]
     Dosage: UNKNOWN
  3. APAP TAB [Concomitant]
     Dosage: UNKNOWN

REACTIONS (4)
  - ACCIDENTAL EXPOSURE [None]
  - ANXIETY [None]
  - DIZZINESS [None]
  - WRONG DRUG ADMINISTERED [None]
